FAERS Safety Report 18732418 (Version 1)
Quarter: 2021Q1

REPORT INFORMATION
  Report Type: Report from Study
  Country: US (occurrence: US)
  Receive Date: 20210113
  Receipt Date: 20210113
  Transmission Date: 20210419
  Serious: Yes (Other)
  Sender: FDA-Public Use
  Company Number: US-TAKEDA-2020TUS041006

PATIENT
  Age: 77 Year
  Sex: Female

DRUGS (1)
  1. VEDOLIZUMAB [Suspect]
     Active Substance: VEDOLIZUMAB
     Indication: CROHN^S DISEASE
     Dosage: 300 MILLIGRAM
     Route: 042
     Dates: start: 202006, end: 20201231

REACTIONS (7)
  - Haemorrhage [Unknown]
  - Blood pressure diastolic decreased [Unknown]
  - Haemoglobin decreased [Unknown]
  - Drug specific antibody present [Unknown]
  - Drug level decreased [Unknown]
  - Frequent bowel movements [Unknown]
  - Dyspnoea [Unknown]

NARRATIVE: CASE EVENT DATE: 202008
